FAERS Safety Report 8599030-8 (Version None)
Quarter: 2012Q3

REPORT INFORMATION
  Report Type: 
  Country: None (occurrence: None)
  Receive Date: 20120816
  Receipt Date: 19940124
  Transmission Date: 20120928
  Serious: Yes (Other)
  Sender: FDA-Public Use
  Company Number: US-ROCHE-1101964

PATIENT
  Age: 52 Year
  Sex: Male

DRUGS (3)
  1. DEMEROL [Concomitant]
  2. NITROGLYCERIN [Concomitant]
  3. ACTIVASE [Suspect]
     Indication: ACUTE MYOCARDIAL INFARCTION

REACTIONS (5)
  - VENTRICULAR EXTRASYSTOLES [None]
  - FLUSHING [None]
  - MOANING [None]
  - CHEST PAIN [None]
  - ANXIETY [None]
